FAERS Safety Report 4761428-3 (Version None)
Quarter: 2005Q3

REPORT INFORMATION
  Report Type: 
  Country: None (occurrence: None)
  Receive Date: 20050901
  Receipt Date: 20050901
  Transmission Date: 20060218
  Serious: Yes (Life-Threatening)
  Sender: FDA-Public Use
  Company Number: None

PATIENT
  Age: 71 Year
  Sex: Male
  Weight: 105 kg

DRUGS (11)
  1. EPTIFIBATIDE 0.75MG/ML COR THERAPEUTICS [Suspect]
     Indication: PROPHYLAXIS
     Dosage: 12.6MG/HR X 2 HOURS IV DRIP
     Route: 041
     Dates: start: 20050427, end: 20050427
  2. EPTIFIBATIDE 0.75MG/ML COR THERAPEUTICS [Suspect]
     Indication: STENT OCCLUSION
     Dosage: 12.6MG/HR X 2 HOURS IV DRIP
     Route: 041
     Dates: start: 20050427, end: 20050427
  3. HEPARIN [Suspect]
     Indication: CATHETERISATION CARDIAC
     Dosage: 7500 UNITS ONCE IV BOLUS
     Route: 040
     Dates: start: 20040427, end: 20050427
  4. HEPARIN [Suspect]
     Indication: MYOCARDIAL INFARCTION
     Dosage: 7500 UNITS ONCE IV BOLUS
     Route: 040
     Dates: start: 20040427, end: 20050427
  5. CLOPIDOGREL [Concomitant]
  6. ASPIRIN [Concomitant]
  7. HEPARIN [Concomitant]
  8. EPTIFIBATIDE [Concomitant]
  9. NITROGLYCERIN [Concomitant]
  10. FLONASE [Concomitant]
  11. ADVAIR DISKUS 100/50 [Concomitant]

REACTIONS (6)
  - DYSPNOEA [None]
  - HAEMODYNAMIC INSTABILITY [None]
  - HYPOXIA [None]
  - LOSS OF CONSCIOUSNESS [None]
  - POST PROCEDURAL HAEMORRHAGE [None]
  - PULMONARY ALVEOLAR HAEMORRHAGE [None]
